FAERS Safety Report 18151067 (Version 2)
Quarter: 2020Q3

REPORT INFORMATION
  Report Type: Spontaneous
  Country: US (occurrence: US)
  Receive Date: 20200814
  Receipt Date: 20200826
  Transmission Date: 20201103
  Serious: No
  Sender: FDA-Public Use
  Company Number: US-PFIZER INC-2020306979

PATIENT
  Age: 55 Year
  Sex: Male

DRUGS (1)
  1. RUXIENCE [Suspect]
     Active Substance: RITUXIMAB-PVVR
     Indication: CHRONIC LYMPHOCYTIC LEUKAEMIA
     Dosage: 375 (UNITS NOT REPORTED), CYCLIC

REACTIONS (2)
  - Pruritus [Unknown]
  - Respiration abnormal [Unknown]
